FAERS Safety Report 9448493 (Version 2)
Quarter: 2013Q4

REPORT INFORMATION
  Report Type: Spontaneous
  Country: GB (occurrence: GB)
  Receive Date: 20130808
  Receipt Date: 20131114
  Transmission Date: 20140711
  Serious: Yes (Other)
  Sender: FDA-Public Use
  Company Number: GB-009507513-1308GBR000602

PATIENT
  Age: 47 Year
  Sex: Male
  Weight: 93 kg

DRUGS (7)
  1. MIRTAZAPINE [Suspect]
     Dosage: UNK
     Route: 048
     Dates: start: 20120627
  2. AMLODIPINE [Concomitant]
     Dosage: UNK
     Dates: start: 20120402, end: 20120430
  3. DIAZEPAM [Concomitant]
     Dosage: UNK
     Dates: start: 20120316
  4. DICLOFENAC SODIUM [Concomitant]
     Dosage: UNK
     Dates: start: 20120704
  5. SERTRALINE HYDROCHLORIDE [Concomitant]
     Dosage: UNK
     Dates: start: 20120316, end: 20120521
  6. THIAMINE [Concomitant]
     Dosage: UNK
     Dates: start: 20120423, end: 20120521
  7. VITAMIN B (UNSPECIFIED) [Concomitant]
     Dosage: UNK
     Dates: start: 20120423, end: 20120521

REACTIONS (6)
  - Joint swelling [Recovering/Resolving]
  - Pain in extremity [Unknown]
  - Gait disturbance [Recovering/Resolving]
  - Local swelling [Recovering/Resolving]
  - Sedation [Unknown]
  - Arthralgia [Not Recovered/Not Resolved]
